FAERS Safety Report 19828226 (Version 1)
Quarter: 2021Q3

REPORT INFORMATION
  Report Type: Spontaneous
  Country: SE (occurrence: SE)
  Receive Date: 20210914
  Receipt Date: 20210914
  Transmission Date: 20211014
  Serious: Yes (Hospitalization)
  Sender: FDA-Public Use
  Company Number: SE-ACCORD-238418

PATIENT
  Age: 73 Year
  Sex: Male

DRUGS (7)
  1. GLYCERYL TRINITRATE [Concomitant]
     Active Substance: NITROGLYCERIN
     Dosage: 1 DOSE IF NEEDED
  2. RAMIPRIL. [Concomitant]
     Active Substance: RAMIPRIL
     Dates: end: 202107
  3. NAPROXEN. [Suspect]
     Active Substance: NAPROXEN
     Indication: PRODUCT USED FOR UNKNOWN INDICATION
     Dates: end: 202107
  4. SILDENAFIL ACCORD [Concomitant]
     Dosage: ONE. IF NECESSARY
  5. EZETIMIBE ACTAVIS [Concomitant]
     Dates: start: 20210531
  6. ROSUVASTATIN. [Suspect]
     Active Substance: ROSUVASTATIN
     Indication: PRODUCT USED FOR UNKNOWN INDICATION
     Dates: end: 202107
  7. THROMBYL [Concomitant]
     Dosage: 75 MG(DOSE: 1)
     Dates: start: 20210722

REACTIONS (3)
  - Acute kidney injury [Unknown]
  - Rhabdomyolysis [Unknown]
  - Gastric ulcer haemorrhage [Unknown]

NARRATIVE: CASE EVENT DATE: 20210710
